FAERS Safety Report 6248987-9 (Version None)
Quarter: 2009Q2

REPORT INFORMATION
  Report Type: 
  Country: None (occurrence: None)
  Receive Date: 20090624
  Receipt Date: 20090624
  Transmission Date: 20091009
  Serious: Yes (Life-Threatening, Hospitalization)
  Sender: FDA-Public Use
  Company Number: None

PATIENT
  Age: 34 Year
  Sex: Female
  Weight: 72.5755 kg

DRUGS (2)
  1. XENICAL [Suspect]
     Indication: WEIGHT LOSS DIET
     Dosage: 3 PILLS DAILY PO ; 2-3 YEARS
     Route: 048
  2. ALLI [Suspect]
     Indication: WEIGHT LOSS DIET
     Dosage: 6 PILLS DAILY PO
     Route: 048

REACTIONS (3)
  - BENIGN NEOPLASM [None]
  - LIVER INJURY [None]
  - VASODILATATION [None]
